FAERS Safety Report 20737549 (Version 1)
Quarter: 2022Q2

REPORT INFORMATION
  Report Type: Report from Study
  Country: GB (occurrence: GB)
  Receive Date: 20220422
  Receipt Date: 20220422
  Transmission Date: 20220721
  Serious: Yes (Disabling, Other)
  Sender: FDA-Public Use
  Company Number: GB-CELLTRION INC.-2022GB004854

PATIENT

DRUGS (1)
  1. INFLIXIMAB [Suspect]
     Active Substance: INFLIXIMAB
     Indication: Colitis ulcerative
     Dosage: 3MG/KG; ; (PHARMACEUTICAL DOSE FORM: 124, ADDITIONAL INFORMATION ON DRUG: ADDITIONAL INFO: ROUTE:)
     Dates: start: 20041101, end: 20211222

REACTIONS (2)
  - Multiple sclerosis [Not Recovered/Not Resolved]
  - Underdose [Unknown]

NARRATIVE: CASE EVENT DATE: 20211222
